FAERS Safety Report 7968373-0 (Version None)
Quarter: 2011Q4

REPORT INFORMATION
  Report Type: 
  Country: None (occurrence: None)
  Receive Date: 20111207
  Receipt Date: 20111125
  Transmission Date: 20120403
  Serious: Yes (Hospitalization)
  Sender: FDA-Public Use
  Company Number: 2011MA017122

PATIENT
  Age: 60 Year
  Sex: Male

DRUGS (11)
  1. TRAMADOL HCL [Concomitant]
  2. MOVIPREP [Concomitant]
  3. ATENOLOL [Concomitant]
  4. SIMVASTATIN [Concomitant]
  5. ASPIRIN [Concomitant]
  6. LERCANIDIPINE [Concomitant]
  7. NITROGLYCERIN [Concomitant]
  8. ACETAMINOPHEN [Concomitant]
  9. NAPROXEN [Suspect]
     Indication: BACK PAIN
     Dosage: 500 MG;BID;PO
     Route: 048
     Dates: start: 20111109, end: 20111120
  10. TRINITRATE [Concomitant]
  11. AMITRIPTYLINE HCL [Concomitant]

REACTIONS (5)
  - DIZZINESS [None]
  - TACHYCARDIA [None]
  - DUODENAL ULCER HAEMORRHAGE [None]
  - HAEMOGLOBIN DECREASED [None]
  - PALLOR [None]
